FAERS Safety Report 13745070 (Version 1)
Quarter: 2017Q3

REPORT INFORMATION
  Report Type: Spontaneous
  Country: US (occurrence: US)
  Receive Date: 20170711
  Receipt Date: 20170711
  Transmission Date: 20171127
  Serious: Yes (Other)
  Sender: FDA-Public Use
  Company Number: None

PATIENT
  Age: 51 Year
  Sex: Female
  Weight: 83.25 kg

DRUGS (5)
  1. LEXAPRO [Concomitant]
     Active Substance: ESCITALOPRAM OXALATE
  2. ZYPREXA [Concomitant]
     Active Substance: OLANZAPINE
  3. KLONOPIN [Suspect]
     Active Substance: CLONAZEPAM
     Indication: ANXIETY
     Route: 048
     Dates: start: 20091101, end: 20170404
  4. LAMICTAL [Concomitant]
     Active Substance: LAMOTRIGINE
  5. SEROQUEL [Concomitant]
     Active Substance: QUETIAPINE FUMARATE

REACTIONS (12)
  - Cold sweat [None]
  - Diarrhoea [None]
  - Chills [None]
  - Fatigue [None]
  - Panic attack [None]
  - Paraesthesia [None]
  - Nausea [None]
  - Suicidal ideation [None]
  - Mood swings [None]
  - Pyrexia [None]
  - Pain in extremity [None]
  - Migraine [None]

NARRATIVE: CASE EVENT DATE: 20170406
